FAERS Safety Report 5326921-3 (Version None)
Quarter: 2007Q2

REPORT INFORMATION
  Report Type: 
  Country: None (occurrence: None)
  Receive Date: 20070511
  Receipt Date: 20070427
  Transmission Date: 20071010
  Serious: Yes (Hospitalization, Other)
  Sender: FDA-Public Use
  Company Number: SPI200700136

PATIENT
  Age: 87 Year
  Sex: Male
  Weight: 78 kg

DRUGS (7)
  1. AMITIZA [Suspect]
     Indication: CONSTIPATION
     Dosage: 24 MCG, BID, ORAL
     Route: 048
     Dates: start: 20070205, end: 20070207
  2. SYNTHROID [Concomitant]
  3. CREON /00014701/ (PANCREATIN) [Concomitant]
  4. MILK OF MAGNESIA TAB [Concomitant]
  5. AVODART [Concomitant]
  6. DULCOLAX /00064401/ (BISACODYL) [Concomitant]
  7. HERBAL PREPARATION [Concomitant]

REACTIONS (11)
  - ANGINA UNSTABLE [None]
  - ATELECTASIS [None]
  - ATRIOVENTRICULAR BLOCK FIRST DEGREE [None]
  - CHEST DISCOMFORT [None]
  - LUNG DISORDER [None]
  - NAUSEA [None]
  - PALPITATIONS [None]
  - SCAR [None]
  - STARING [None]
  - SYNCOPE [None]
  - UNRESPONSIVE TO STIMULI [None]
